FAERS Safety Report 13913981 (Version 1)
Quarter: 2017Q3

REPORT INFORMATION
  Report Type: Spontaneous
  Country: US (occurrence: US)
  Receive Date: 20170828
  Receipt Date: 20170828
  Transmission Date: 20171127
  Serious: No
  Sender: FDA-Public Use
  Company Number: US-ROCHE-1140350

PATIENT
  Sex: Male
  Weight: 47 kg

DRUGS (3)
  1. NUTROPIN AQ [Suspect]
     Active Substance: SOMATROPIN
     Route: 058
  2. NUTROPIN AQ [Suspect]
     Active Substance: SOMATROPIN
     Indication: GROWTH RETARDATION
     Route: 058
     Dates: start: 19991122
  3. NUTROPIN AQ [Suspect]
     Active Substance: SOMATROPIN
     Route: 058

REACTIONS (3)
  - Varicocele [Unknown]
  - Back pain [Unknown]
  - Acne [Unknown]
